FAERS Safety Report 16135795 (Version 1)
Quarter: 2019Q1

REPORT INFORMATION
  Report Type: Spontaneous
  Country: US (occurrence: US)
  Receive Date: 20190329
  Receipt Date: 20190329
  Transmission Date: 20190418
  Serious: No
  Sender: FDA-Public Use
  Company Number: US-BAUSCH-BL-2019-008178

PATIENT
  Age: 11 Year
  Sex: Female

DRUGS (3)
  1. APRISO [Suspect]
     Active Substance: MESALAMINE
     Dosage: BACK ON THE APRISO NOW FOR ABOUT 2 MONTHS
     Route: 065
     Dates: start: 2019
  2. BALSALAZIDE [Suspect]
     Active Substance: BALSALAZIDE
     Indication: PRODUCT USED FOR UNKNOWN INDICATION
     Dosage: DURATION: ABOUT 7 MONTHS
     Route: 065
  3. APRISO [Suspect]
     Active Substance: MESALAMINE
     Indication: PRODUCT USED FOR UNKNOWN INDICATION
     Dosage: USED FOR THE LAST 6 YEARS
     Route: 065
     Dates: end: 2018

REACTIONS (3)
  - Inability to afford medication [Unknown]
  - Product use issue [Unknown]
  - Ill-defined disorder [Unknown]

NARRATIVE: CASE EVENT DATE: 2018
